FAERS Safety Report 10184068 (Version 1)
Quarter: 2014Q2

REPORT INFORMATION
  Report Type: Spontaneous
  Country: FR (occurrence: FR)
  Receive Date: 20140520
  Receipt Date: 20140520
  Transmission Date: 20141212
  Serious: Yes (Hospitalization, Other)
  Sender: FDA-Public Use
  Company Number: FR-ELI_LILLY_AND_COMPANY-FR201405002652

PATIENT
  Age: 45 Year
  Sex: Male
  Weight: 75 kg

DRUGS (2)
  1. GEMZAR [Suspect]
     Indication: MALIGNANT NEOPLASM OF AMPULLA OF VATER
     Dosage: UNK
     Route: 042
     Dates: start: 2010, end: 20140410
  2. ABRAXANE [Concomitant]
     Indication: MALIGNANT NEOPLASM OF AMPULLA OF VATER
     Dosage: UNK
     Route: 065
     Dates: start: 20140410, end: 20140422

REACTIONS (7)
  - Inflammation [Not Recovered/Not Resolved]
  - Muscle injury [Not Recovered/Not Resolved]
  - Back pain [Not Recovered/Not Resolved]
  - Infective myositis [Unknown]
  - Pyrexia [Not Recovered/Not Resolved]
  - Malignant neoplasm progression [Unknown]
  - Off label use [Unknown]
